FAERS Safety Report 9491378 (Version 2)
Quarter: 2013Q3

REPORT INFORMATION
  Report Type: Report from Study
  Country: SK (occurrence: SK)
  Receive Date: 20130830
  Receipt Date: 20130830
  Transmission Date: 20140515
  Serious: Yes (Hospitalization)
  Sender: FDA-Public Use
  Company Number: PHHO2010SK07472

PATIENT
  Age: 76 Year
  Sex: Female

DRUGS (1)
  1. ALISKIREN [Suspect]
     Indication: CARDIOVASCULAR DISORDER
     Route: 048
     Dates: start: 20090202, end: 20090323

REACTIONS (2)
  - Cardiac failure [Recovered/Resolved]
  - Ventricular hypertrophy [Recovered/Resolved]
